FAERS Safety Report 9468814 (Version 3)
Quarter: 2013Q3

REPORT INFORMATION
  Report Type: Spontaneous
  Country: AU (occurrence: AU)
  Receive Date: 20130821
  Receipt Date: 20130930
  Transmission Date: 20140515
  Serious: Yes (Death)
  Sender: FDA-Public Use
  Company Number: AU-B.I. PHARMACEUTICALS,INC./RIDGEFIELD-2013-AU-01014AU

PATIENT
  Sex: Female
  Weight: 55 kg

DRUGS (4)
  1. PRADAXA [Suspect]
     Indication: CEREBROVASCULAR ACCIDENT PROPHYLAXIS
     Dates: start: 20110819
  2. PRADAXA [Suspect]
     Indication: ATRIAL FIBRILLATION
  3. PROTON PUMP INHIBITOR [Concomitant]
  4. CLOPIDOGREL [Concomitant]

REACTIONS (1)
  - Death [Fatal]
